FAERS Safety Report 8540736-4 (Version None)
Quarter: 2012Q2

REPORT INFORMATION
  Report Type: 
  Country: None (occurrence: None)
  Receive Date: 20120416
  Receipt Date: 20080703
  Transmission Date: 20120825
  Serious: Yes (Other)
  Sender: FDA-Public Use
  Company Number: PHEH2008US05974

PATIENT
  Sex: Female

DRUGS (1)
  1. DIOVAN [Suspect]
     Indication: HYPERTENSION
     Dosage: 80 MG, QD, ORAL
     Route: 048
     Dates: end: 20080628

REACTIONS (5)
  - ORTHOSTATIC HYPOTENSION [None]
  - PRESYNCOPE [None]
  - ANXIETY [None]
  - DRY MOUTH [None]
  - CONDITION AGGRAVATED [None]
